FAERS Safety Report 14979911 (Version 1)
Quarter: 2018Q2

REPORT INFORMATION
  Report Type: Spontaneous
  Country: GB (occurrence: GB)
  Receive Date: 20180516
  Receipt Date: 20180516
  Transmission Date: 20180711
  Serious: No
  Sender: FDA-Public Use
  Company Number: None

PATIENT
  Age: 75 Year
  Sex: Male
  Weight: 60.75 kg

DRUGS (2)
  1. CLARITHROMYCIN 500MG [Suspect]
     Active Substance: CLARITHROMYCIN
     Indication: PHARYNGITIS
     Dosage: ?          QUANTITY:10 DF DOSAGE FORM;?
     Route: 048
     Dates: start: 20180511, end: 20180515
  2. MULTI VITAMIN TABLETS [Concomitant]

REACTIONS (4)
  - Dysgeusia [None]
  - Palpitations [None]
  - Dyspnoea [None]
  - Heart rate irregular [None]

NARRATIVE: CASE EVENT DATE: 20180516
